FAERS Safety Report 9443611 (Version 2)
Quarter: 2013Q3

REPORT INFORMATION
  Report Type: Report from Study
  Country: DE (occurrence: DE)
  Receive Date: 20130806
  Receipt Date: 20130823
  Transmission Date: 20140515
  Serious: Yes (Hospitalization)
  Sender: FDA-Public Use
  Company Number: PHHO2013DE008041

PATIENT
  Age: 55 Year
  Sex: Male
  Weight: 86 kg

DRUGS (9)
  1. CARBAMAZEPINE [Suspect]
     Indication: CONCUSSION
     Dosage: 300 MG, BID
     Route: 048
     Dates: start: 20130523
  2. TIZANIDINE [Suspect]
     Indication: CONCUSSION
     Dosage: 2 MG, BID
     Route: 048
     Dates: start: 20130523
  3. AIN457 [Suspect]
     Indication: PSORIASIS
     Dosage: DOSE BLINDED
     Route: 058
     Dates: start: 20130129
  4. ASS [Concomitant]
     Indication: ARTERIOSCLEROSIS CORONARY ARTERY
     Dosage: 100 MG, BID
     Route: 048
     Dates: start: 20121211
  5. RAMIPRIL [Concomitant]
     Indication: HYPERTENSION
     Dosage: 5 MG, QD
     Route: 048
     Dates: start: 201106, end: 20130611
  6. RAMIPRIL [Concomitant]
     Dosage: 5 MG, BID
     Route: 048
     Dates: start: 20130618
  7. METOPROLOL [Concomitant]
     Indication: HYPERTENSION
     Dosage: 95 MG, BID
     Route: 048
     Dates: start: 20121217
  8. FLUPIRTINE [Concomitant]
     Indication: CONCUSSION
     Dosage: 100 MG, TID
     Route: 048
     Dates: start: 20130523
  9. HYDROCHLOROTHIAZIDE [Concomitant]
     Indication: HYPERTENSION
     Dosage: 25 MG, QD
     Route: 048
     Dates: start: 20130123, end: 20130614

REACTIONS (2)
  - Hypotension [Recovered/Resolved]
  - Extradural haematoma [Recovered/Resolved]
